FAERS Safety Report 5869407-X (Version None)
Quarter: 2008Q3

REPORT INFORMATION
  Report Type: 
  Country: None (occurrence: None)
  Receive Date: 20080828
  Receipt Date: 20080818
  Transmission Date: 20090109
  Serious: Yes (Hospitalization, Disabling)
  Sender: FDA-Public Use
  Company Number: GXKR2008GB07795

PATIENT
  Age: 65 Year
  Sex: Male

DRUGS (9)
  1. OMEPRAZOLE [Suspect]
     Indication: GASTROINTESTINAL HAEMORRHAGE
     Dosage: 20 MG, ORAL
     Route: 048
     Dates: start: 20080801, end: 20080805
  2. AMLODIPINE [Concomitant]
  3. ACETYLSALICYLIC ACID (ACETYLSALICYLIC AICD) [Concomitant]
  4. CLOPIDOGREL [Concomitant]
  5. FUROSEMIDE (FUROSEMIDE) [Concomitant]
  6. PABRINEX (ASCORBIC ACID, NICOTINAMIDE, PYRIDOXINE HYDROCHLORIDE, RIBOF [Concomitant]
  7. SIMVASTATIN [Concomitant]
  8. THIAMINE (THIAMINE) [Concomitant]
  9. VITAMIN B COMPLEX (CALCIUM PANTOTHENATE, NICOTINAMIDE, PYRIDOXINE HYDR [Concomitant]

REACTIONS (3)
  - AGGRESSION [None]
  - DELUSIONAL DISORDER, PERSECUTORY TYPE [None]
  - HALLUCINATION [None]
